FAERS Safety Report 20411764 (Version 1)
Quarter: 2022Q1

REPORT INFORMATION
  Report Type: Report from Study
  Country: KR (occurrence: KR)
  Receive Date: 20220201
  Receipt Date: 20220201
  Transmission Date: 20220423
  Serious: Yes (Hospitalization)
  Sender: FDA-Public Use
  Company Number: KR-GLAXOSMITHKLINE-KR2022GSK013352

PATIENT
  Age: 38 Year
  Sex: Female
  Weight: 72.7 kg

DRUGS (13)
  1. BELIMUMAB [Suspect]
     Active Substance: BELIMUMAB
     Indication: Systemic lupus erythematosus
     Dosage: 760 SINGLE
     Route: 042
     Dates: start: 20211129, end: 20211129
  2. BELIMUMAB [Suspect]
     Active Substance: BELIMUMAB
     Dosage: 760 SINGLE
     Route: 042
     Dates: start: 20211213, end: 20211213
  3. BELIMUMAB [Suspect]
     Active Substance: BELIMUMAB
     Dosage: 760 SINGLE
     Route: 042
     Dates: start: 20211227, end: 20211227
  4. HYDROCORTISONE SODIUM SUCCINATE [Concomitant]
     Active Substance: HYDROCORTISONE SODIUM SUCCINATE
     Dosage: 50 MG SIGNLE DOSE
     Route: 042
     Dates: start: 20211227, end: 20211227
  5. HYDROCORTISONE SODIUM SUCCINATE [Concomitant]
     Active Substance: HYDROCORTISONE SODIUM SUCCINATE
     Dosage: 50 MG SIGNLE DOSE
     Dates: start: 20211213, end: 20211213
  6. D-MAC TABLET [Concomitant]
     Indication: Prophylaxis
     Dosage: 1 DF, 1D
     Route: 048
     Dates: start: 20210419, end: 20210419
  7. DIOVAN [Concomitant]
     Active Substance: VALSARTAN
     Indication: Hypertension
     Dosage: 80 MG, 1D
     Dates: start: 20210830
  8. URSA TABLET [Concomitant]
     Indication: Autoimmune hepatitis
     Dosage: 100 MG, 1D
     Route: 048
     Dates: start: 20200602
  9. RABIET TABLET [Concomitant]
     Indication: Prophylaxis
     Dosage: 10 MG, 1D
     Route: 048
     Dates: start: 20210816
  10. NIFEDIX ER [Concomitant]
     Dosage: 30 MG, 1D
     Route: 048
     Dates: start: 20210118
  11. PHENIRAMINE INJECTION (CHLORPHENAMINE) [Concomitant]
     Indication: Prophylaxis
     Dosage: 4 MG, 1D
     Route: 042
     Dates: start: 20211129, end: 20211129
  12. PHENIRAMINE INJECTION (CHLORPHENAMINE) [Concomitant]
     Dosage: 4 MG, 1D
     Route: 042
     Dates: start: 20211213, end: 20211213
  13. PHENIRAMINE INJECTION (CHLORPHENAMINE) [Concomitant]
     Dosage: 4 MG, 1D
     Route: 042
     Dates: start: 20211227, end: 20211227

REACTIONS (1)
  - Enteritis [Recovered/Resolved]

NARRATIVE: CASE EVENT DATE: 20220122
